FAERS Safety Report 4600809-5 (Version None)
Quarter: 2005Q1

REPORT INFORMATION
  Report Type: 
  Country: None (occurrence: None)
  Receive Date: 20050304
  Receipt Date: 20050224
  Transmission Date: 20050727
  Serious: Yes (Other)
  Sender: FDA-Public Use
  Company Number: S05-USA-00987-01

PATIENT
  Age: 25 Year
  Sex: Female

DRUGS (2)
  1. LEXAPRO [Suspect]
     Indication: ANXIETY
     Dates: start: 20050101
  2. LEXAPRO [Suspect]
     Indication: DEPRESSION
     Dates: start: 20050101

REACTIONS (5)
  - CONVULSION [None]
  - FOAMING AT MOUTH [None]
  - LETHARGY [None]
  - LOSS OF CONSCIOUSNESS [None]
  - ROAD TRAFFIC ACCIDENT [None]
